FAERS Safety Report 13507514 (Version 1)
Quarter: 2017Q2

REPORT INFORMATION
  Report Type: Spontaneous
  Country: US (occurrence: US)
  Receive Date: 20170502
  Receipt Date: 20170502
  Transmission Date: 20170830
  Serious: No
  Sender: FDA-Public Use
  Company Number: None

PATIENT
  Age: 59 Year
  Sex: Female

DRUGS (1)
  1. CAPECITABINE 500MG ACCORD [Suspect]
     Active Substance: CAPECITABINE
     Indication: PRODUCT USED FOR UNKNOWN INDICATION
     Route: 048
     Dates: start: 20161129

REACTIONS (4)
  - Palmar-plantar erythrodysaesthesia syndrome [None]
  - Skin irritation [None]
  - Skin disorder [None]
  - Dry skin [None]

NARRATIVE: CASE EVENT DATE: 20170401
